FAERS Safety Report 9649771 (Version 1)
Quarter: 2013Q4

REPORT INFORMATION
  Report Type: Spontaneous
  Country: US (occurrence: US)
  Receive Date: 20131028
  Receipt Date: 20131028
  Transmission Date: 20140711
  Serious: No
  Sender: FDA-Public Use
  Company Number: US-PURDUE-USA-2012-0096183

PATIENT
  Age: 40 Year
  Sex: Male

DRUGS (2)
  1. OXYCODONE HCL IMMEDIATE RELEASE (91-490) [Suspect]
     Indication: BREAKTHROUGH PAIN
     Dosage: 15 MG, TID
     Route: 048
  2. OXYCONTIN (NDA 22-272) [Concomitant]
     Indication: CANCER PAIN
     Dosage: 80 MG, FIVE TIMES DAILY
     Route: 048

REACTIONS (1)
  - Drug effect decreased [Unknown]
